FAERS Safety Report 15697472 (Version 6)
Quarter: 2019Q2

REPORT INFORMATION
  Report Type: Spontaneous
  Country: US (occurrence: US)
  Receive Date: 20181207
  Receipt Date: 20190508
  Transmission Date: 20190711
  Serious: Yes (Other)
  Sender: FDA-Public Use
  Company Number: US-BRISTOL-MYERS SQUIBB COMPANY-BMS-2018-112588

PATIENT
  Sex: Female

DRUGS (1)
  1. ORENCIA [Suspect]
     Active Substance: ABATACEPT
     Indication: RHEUMATOID ARTHRITIS
     Dosage: 125 MG, QWK
     Route: 058
     Dates: start: 201811

REACTIONS (9)
  - Arthropathy [Unknown]
  - Headache [Unknown]
  - Hypersensitivity [Unknown]
  - Malaise [Unknown]
  - Concussion [Unknown]
  - Fatigue [Unknown]
  - Head injury [Unknown]
  - Joint swelling [Unknown]
  - Dizziness [Unknown]
